FAERS Safety Report 19426172 (Version 1)
Quarter: 2021Q2

REPORT INFORMATION
  Report Type: Spontaneous
  Country: JP (occurrence: JP)
  Receive Date: 20210617
  Receipt Date: 20210617
  Transmission Date: 20210717
  Serious: Yes (Other)
  Sender: FDA-Public Use
  Company Number: JP-SUN PHARMACEUTICAL INDUSTRIES LTD-2021R1-300241

PATIENT
  Age: 70 Year
  Sex: Male

DRUGS (4)
  1. IRINOTECAN 40MG [Suspect]
     Active Substance: IRINOTECAN
     Indication: PANCREATIC CARCINOMA STAGE IV
     Dosage: UNK
     Route: 065
  2. FLUOROURACIL. [Suspect]
     Active Substance: FLUOROURACIL
     Indication: PANCREATIC CARCINOMA STAGE IV
     Dosage: UNK
     Route: 065
  3. OXALIPLATIN. [Suspect]
     Active Substance: OXALIPLATIN
     Indication: PANCREATIC CARCINOMA STAGE IV
     Dosage: UNK
     Route: 065
  4. LEVOFOLINATE [Suspect]
     Active Substance: LEVOLEUCOVORIN CALCIUM
     Indication: PANCREATIC CARCINOMA STAGE IV
     Dosage: UNK
     Route: 065

REACTIONS (11)
  - Blood alkaline phosphatase increased [Unknown]
  - Decreased appetite [Unknown]
  - Fatigue [Unknown]
  - Neuropathy peripheral [Unknown]
  - Anaemia [Unknown]
  - Platelet count decreased [Unknown]
  - Hypokalaemia [Unknown]
  - Lung cyst [Unknown]
  - Nausea [Unknown]
  - Hypoalbuminaemia [Unknown]
  - Malaise [Unknown]
